FAERS Safety Report 21957157 (Version 1)
Quarter: 2023Q1

REPORT INFORMATION
  Report Type: Spontaneous
  Country: US (occurrence: None)
  Receive Date: 20230203
  Receipt Date: 20230203
  Transmission Date: 20230418
  Serious: Yes (Other)
  Sender: FDA-Public Use
  Company Number: None

PATIENT
  Age: 69 Year
  Sex: Female

DRUGS (6)
  1. FINGOLIMOD [Suspect]
     Active Substance: FINGOLIMOD
     Indication: Multiple sclerosis
     Dosage: FREQUENCY : DAILY;?
     Route: 048
     Dates: start: 20150101
  2. BACLOFEN [Concomitant]
     Active Substance: BACLOFEN
  3. FAMCICLOVIR [Concomitant]
     Active Substance: FAMCICLOVIR
  4. BUPROPION [Concomitant]
     Active Substance: BUPROPION
  5. CITALOPRAM [Concomitant]
     Active Substance: CITALOPRAM HYDROBROMIDE
  6. LEVOTHYROXINE [Concomitant]
     Active Substance: LEVOTHYROXINE

REACTIONS (2)
  - Alopecia [None]
  - Onychoclasis [None]

NARRATIVE: CASE EVENT DATE: 20230203
